FAERS Safety Report 6851598-5 (Version None)
Quarter: 2010Q3

REPORT INFORMATION
  Report Type: 
  Country: None (occurrence: None)
  Receive Date: 20100717
  Receipt Date: 20080122
  Transmission Date: 20110219
  Serious: No
  Sender: FDA-Public Use
  Company Number: US-PFIZER INC-2008006941

PATIENT
  Sex: Female
  Weight: 60 kg

DRUGS (8)
  1. CHANTIX [Suspect]
     Indication: SMOKING CESSATION THERAPY
     Dates: start: 20080107
  2. HUMIRA [Concomitant]
     Indication: RHEUMATOID ARTHRITIS
  3. METHOTREXATE [Concomitant]
     Indication: RHEUMATOID ARTHRITIS
  4. VENLAFAXINE HYDROCHLORIDE [Concomitant]
     Indication: MIGRAINE
  5. TOPAMAX [Concomitant]
     Indication: MIGRAINE
  6. OMEPRAZOLE [Concomitant]
  7. FOLIC ACID [Concomitant]
  8. IMITREX [Concomitant]

REACTIONS (2)
  - ABNORMAL DREAMS [None]
  - INSOMNIA [None]
